FAERS Safety Report 13467509 (Version 2)
Quarter: 2017Q2

REPORT INFORMATION
  Report Type: Spontaneous
  Country: DE (occurrence: DE)
  Receive Date: 20170421
  Receipt Date: 20170503
  Transmission Date: 20170830
  Serious: Yes (Other)
  Sender: FDA-Public Use
  Company Number: DE-DEPOMED, INC.-DE-2017DEP000771

PATIENT
  Age: 23 Year
  Sex: Female
  Weight: 72 kg

DRUGS (5)
  1. DIPYRONE [Suspect]
     Active Substance: DIPYRONE
     Indication: PROCEDURAL PAIN
     Dosage: 1 G, SHORT INFUSION
     Route: 065
  2. PROPOFOL. [Suspect]
     Active Substance: PROPOFOL
     Indication: ANAESTHESIA
     Dosage: 200 MG, SINGLE
     Route: 042
  3. PROPOFOL. [Suspect]
     Active Substance: PROPOFOL
     Dosage: 6 MG/KG/HR
     Route: 055
  4. PROPOFOL. [Suspect]
     Active Substance: PROPOFOL
     Dosage: 100 MG, SINGLE
     Route: 065
  5. FENTANYL. [Suspect]
     Active Substance: FENTANYL
     Indication: ANAESTHESIA
     Dosage: 0.2 MG, UNK
     Route: 042

REACTIONS (1)
  - Anticholinergic syndrome [Recovered/Resolved]
